FAERS Safety Report 9631634 (Version 3)
Quarter: 2013Q4

REPORT INFORMATION
  Report Type: Spontaneous
  Country: DE (occurrence: None)
  Receive Date: 20131001
  Receipt Date: 20131017
  Transmission Date: 20140711
  Serious: Yes (Hospitalization, Other)
  Sender: FDA-Public Use
  Company Number: 2013038146

PATIENT
  Age: 47 Year
  Sex: Female

DRUGS (1)
  1. PRIVIGEN (IMMUNE GLOBULIN INTRAVENOUS (HUMAN) 10% LIQUID) [Suspect]
     Indication: MYASTHENIA GRAVIS
     Dosage: 10 G BID, 10 G X 2
     Route: 042
     Dates: start: 20130913, end: 20130913

REACTIONS (8)
  - Sepsis [None]
  - Leukopenia [None]
  - Lymphopenia [None]
  - Off label use [None]
  - Thrombocytopenia [None]
  - Liver function test abnormal [None]
  - Procalcitonin increased [None]
  - Coagulopathy [None]
